FAERS Safety Report 20859277 (Version 1)
Quarter: 2022Q2

REPORT INFORMATION
  Report Type: Spontaneous
  Country: CZ (occurrence: CZ)
  Receive Date: 20220523
  Receipt Date: 20220523
  Transmission Date: 20220720
  Serious: Yes (Hospitalization, Other)
  Sender: FDA-Public Use
  Company Number: CZ-AMGEN-CZESP2022086170

PATIENT
  Age: 57 Year
  Sex: Male
  Weight: 70 kg

DRUGS (3)
  1. AIMOVIG [Suspect]
     Active Substance: ERENUMAB-AOOE
     Indication: Migraine without aura
     Dosage: 140 MG, 28D
     Route: 058
     Dates: start: 20200204, end: 20220215
  2. INDOMETHACIN [Concomitant]
     Active Substance: INDOMETHACIN
     Indication: Migraine without aura
     Dosage: 100 MG (ONGOING TREATMENT)
     Route: 054
     Dates: start: 1999
  3. SUMATRIPTAN [Concomitant]
     Active Substance: SUMATRIPTAN
     Indication: Migraine without aura
     Dosage: 50 MG (ONGOING TREATMENT)
     Route: 048
     Dates: start: 1999

REACTIONS (5)
  - Subileus [Recovered/Resolved]
  - Pain [Unknown]
  - Vomiting [Unknown]
  - Diarrhoea [Unknown]
  - Abdominal pain [Unknown]

NARRATIVE: CASE EVENT DATE: 20220201
